FAERS Safety Report 6321599-4 (Version None)
Quarter: 2009Q3

REPORT INFORMATION
  Report Type: 
  Country: None (occurrence: None)
  Receive Date: 20090820
  Receipt Date: 20090820
  Transmission Date: 20100115
  Serious: Yes (Other)
  Sender: FDA-Public Use
  Company Number: None

PATIENT
  Age: 54 Year
  Sex: Female
  Weight: 90.7194 kg

DRUGS (1)
  1. GREEN SMOKE ELECTRONIC LOWEST NICOTINE CARTRIDGE GREEN SMOKE, INC. [Suspect]
     Indication: SMOKING CESSATION THERAPY
     Dosage: 1 ECIG ONCE PO ONE TIME
     Route: 048
     Dates: start: 20090718, end: 20090718

REACTIONS (2)
  - HEADACHE [None]
  - NAUSEA [None]
